FAERS Safety Report 4892437-1 (Version None)
Quarter: 2006Q1

REPORT INFORMATION
  Report Type: 
  Country: None (occurrence: None)
  Receive Date: 20060126
  Receipt Date: 20060116
  Transmission Date: 20060701
  Serious: Yes (Hospitalization)
  Sender: FDA-Public Use
  Company Number: PHRM2006FR00512

PATIENT
  Age: 80 Year
  Sex: Female
  Weight: 58 kg

DRUGS (6)
  1. LOZOL [Concomitant]
     Route: 048
  2. PENTOFLUX [Concomitant]
     Route: 048
  3. ZOCOR [Concomitant]
     Route: 048
  4. LEPONEX [Suspect]
     Dosage: 300 MG, ONCE/SINGLE
     Route: 048
     Dates: start: 20051205, end: 20051205
  5. LEVOTHYROX [Concomitant]
     Route: 048
  6. TRIVASTAL [Concomitant]

REACTIONS (3)
  - ACCIDENTAL EXPOSURE [None]
  - DEPRESSED LEVEL OF CONSCIOUSNESS [None]
  - SOMNOLENCE [None]
